FAERS Safety Report 13696342 (Version 3)
Quarter: 2018Q4

REPORT INFORMATION
  Report Type: Spontaneous
  Country: FR (occurrence: FR)
  Receive Date: 20170628
  Receipt Date: 20181127
  Transmission Date: 20190204
  Serious: Yes (Hospitalization)
  Sender: FDA-Public Use
  Company Number: FR-ASTRAZENECA-2017SE66084

PATIENT
  Age: 17240 Day
  Sex: Male
  Weight: 90 kg

DRUGS (5)
  1. LOVENOX [Suspect]
     Active Substance: ENOXAPARIN SODIUM
     Indication: ACUTE CORONARY SYNDROME
     Route: 058
     Dates: start: 20170611, end: 20170611
  2. KARDEGIC [Suspect]
     Active Substance: ASPIRIN DL-LYSINE
     Indication: ACUTE CORONARY SYNDROME
     Route: 048
     Dates: start: 20170611
  3. REOPRO [Suspect]
     Active Substance: ABCIXIMAB
     Indication: ACUTE CORONARY SYNDROME
     Dosage: 2 MG/ML AT 3.3 MG PER HOUR DURING 12H (TOTAL 39.6 MG FOR 12H)
     Route: 042
     Dates: start: 20170611, end: 20170611
  4. LOVENOX [Suspect]
     Active Substance: ENOXAPARIN SODIUM
     Indication: ACUTE CORONARY SYNDROME
     Route: 042
     Dates: start: 20170611, end: 20170611
  5. BRILIQUE [Suspect]
     Active Substance: TICAGRELOR
     Indication: ACUTE CORONARY SYNDROME
     Route: 048
     Dates: start: 20170611

REACTIONS (2)
  - Anaemia [Not Recovered/Not Resolved]
  - Haemorrhage [Not Recovered/Not Resolved]

NARRATIVE: CASE EVENT DATE: 20170611
